FAERS Safety Report 20152482 (Version 1)
Quarter: 2021Q4

REPORT INFORMATION
  Report Type: Spontaneous
  Country: US (occurrence: US)
  Receive Date: 20211206
  Receipt Date: 20211206
  Transmission Date: 20220303
  Serious: No
  Sender: FDA-Public Use
  Company Number: US-UROGEN PHARMA LTD.-2021-UGN-000093

PATIENT
  Age: 70 Year
  Sex: Male

DRUGS (4)
  1. JELMYTO [Suspect]
     Active Substance: MITOMYCIN
     Indication: Transitional cell cancer of the renal pelvis and ureter
     Dosage: ONE TIMES PER WEEK (INSTILLATION)
     Dates: start: 20211006, end: 20211006
  2. JELMYTO [Suspect]
     Active Substance: MITOMYCIN
     Indication: Bladder cancer
     Dosage: ONE TIMES PER WEEK (INSTILLATION)
     Dates: start: 202110, end: 202110
  3. JELMYTO [Suspect]
     Active Substance: MITOMYCIN
     Dosage: ONE TIMES PER WEEK (INSTILLATION)
     Dates: start: 202110, end: 202110
  4. JELMYTO [Suspect]
     Active Substance: MITOMYCIN
     Dosage: ONE TIMES PER WEEK (INSTILLATION)
     Dates: start: 20211027, end: 20211027

REACTIONS (3)
  - Blister [Recovered/Resolved]
  - Erythema [Recovered/Resolved]
  - Pruritus [Recovered/Resolved]

NARRATIVE: CASE EVENT DATE: 20211102
